FAERS Safety Report 5318087-0 (Version None)
Quarter: 2007Q1

REPORT INFORMATION
  Report Type: 
  Country: None (occurrence: None)
  Receive Date: 20070207
  Receipt Date: 20061123
  Transmission Date: 20070707
  Serious: No
  Sender: FDA-Public Use
  Company Number: SPV1-2006-01396

PATIENT
  Sex: Male
  Weight: 80 kg

DRUGS (6)
  1. FOSRENOL [Suspect]
     Indication: HYPOPHOSPHATAEMIA
     Dosage: 750 MG, 1X/DAY:QD
     Route: 048
     Dates: start: 20060826, end: 20060915
  2. COSAAR       (LOSARTAN POTASSIUM) [Concomitant]
  3. FELODIPINE [Concomitant]
  4. FUROSEMIDE [Concomitant]
  5. ASPIRIN [Concomitant]
  6. ALFACALCIDOL (ALFACALIDOL) [Concomitant]

REACTIONS (1)
  - BLISTER [None]
